FAERS Safety Report 6588080-9 (Version None)
Quarter: 2010Q1

REPORT INFORMATION
  Report Type: 
  Country: None (occurrence: None)
  Receive Date: 20100218
  Receipt Date: 20100209
  Transmission Date: 20100710
  Serious: Yes (Hospitalization)
  Sender: FDA-Public Use
  Company Number: PHHY2009BE00968

PATIENT
  Sex: Male

DRUGS (6)
  1. RASILEZ [Suspect]
     Indication: HYPERTENSION
     Dosage: 150 MG, DAILY
     Route: 048
     Dates: start: 20080708
  2. CRESTOR [Concomitant]
  3. DIAMICRON [Concomitant]
  4. GLUCOPHAGE [Concomitant]
  5. AMLODIPINE [Concomitant]
  6. COVERSYL PLUS [Concomitant]

REACTIONS (10)
  - BLOOD CREATININE INCREASED [None]
  - BLOOD UREA INCREASED [None]
  - DYSPNOEA [None]
  - EYELID OEDEMA [None]
  - FALL [None]
  - GENERAL PHYSICAL HEALTH DETERIORATION [None]
  - HAEMATOMA [None]
  - MALAISE [None]
  - OEDEMA PERIPHERAL [None]
  - RENAL FAILURE [None]
